FAERS Safety Report 6046842-0 (Version None)
Quarter: 2009Q1

REPORT INFORMATION
  Report Type: 
  Country: None (occurrence: None)
  Receive Date: 20090122
  Receipt Date: 20090116
  Transmission Date: 20090719
  Serious: Yes (Hospitalization)
  Sender: FDA-Public Use
  Company Number: A0764368A

PATIENT
  Sex: Female
  Weight: 70 kg

DRUGS (4)
  1. AVANDIA [Suspect]
  2. MICRONASE [Concomitant]
  3. GLIBENCLAMIDE [Concomitant]
  4. GLUCOPHAGE [Concomitant]
     Dosage: 750MG TWICE PER DAY
     Dates: end: 20081220

REACTIONS (3)
  - BLOOD GLUCOSE DECREASED [None]
  - CARDIAC DISORDER [None]
  - GLYCOSYLATED HAEMOGLOBIN INCREASED [None]
